FAERS Safety Report 11684523 (Version 1)
Quarter: 2015Q4

REPORT INFORMATION
  Report Type: Other
  Country: US (occurrence: US)
  Receive Date: 20151029
  Receipt Date: 20151029
  Transmission Date: 20160304
  Serious: Yes (Hospitalization)
  Sender: FDA-Public Use
  Company Number: US-FRI-1000080521

PATIENT
  Age: 62 Year
  Sex: Female

DRUGS (13)
  1. COLISTIN [Suspect]
     Active Substance: COLISTIN
  2. AVYCAZ [Suspect]
     Active Substance: AVIBACTAM SODIUM\CEFTAZIDIME
     Dosage: 5 GRAM
  3. MEROPENEM. [Concomitant]
     Active Substance: MEROPENEM
  4. MEROPENEM. [Concomitant]
     Active Substance: MEROPENEM
  5. VANCOMYCIN [Concomitant]
     Active Substance: VANCOMYCIN
     Dosage: 2 GRAM
     Route: 042
  6. COLISTIN [Suspect]
     Active Substance: COLISTIN
  7. POLYMYXIN B. [Concomitant]
     Active Substance: POLYMYXIN B
  8. TIGECYCLINE. [Concomitant]
     Active Substance: TIGECYCLINE
     Dosage: 200 MG
  9. CEFEPIME [Concomitant]
     Active Substance: CEFEPIME HYDROCHLORIDE
     Dosage: 6 GRAM
  10. GENTAMICIN. [Suspect]
     Active Substance: GENTAMICIN
     Indication: CITROBACTER INFECTION
     Dosage: 7 MG/KG
     Route: 042
  11. GENTAMICIN. [Suspect]
     Active Substance: GENTAMICIN
     Indication: MULTIPLE-DRUG RESISTANCE
  12. TRIMETHOPRIM-SULFAMETHOXAZOLE [Concomitant]
     Active Substance: SULFAMETHOXAZOLE\TRIMETHOPRIM
  13. PIPERACILLIIN-TAZOBACTAM [Concomitant]

REACTIONS (8)
  - Drug resistance [Unknown]
  - Klebsiella test positive [Unknown]
  - Lung infiltration [Unknown]
  - Renal injury [Unknown]
  - Respiratory failure [Unknown]
  - Mental status changes [Unknown]
  - Multiple-drug resistance [Unknown]
  - Hypotension [Unknown]
